FAERS Safety Report 17483440 (Version 1)
Quarter: 2020Q1

REPORT INFORMATION
  Report Type: Spontaneous
  Country: RU (occurrence: RU)
  Receive Date: 20200302
  Receipt Date: 20200302
  Transmission Date: 20200409
  Serious: Yes (Other)
  Sender: FDA-Public Use
  Company Number: RU-TEVA-2020-RU-1193259

PATIENT
  Age: 25 Year
  Sex: Male

DRUGS (1)
  1. TOPSAVER [Suspect]
     Active Substance: TOPIRAMATE
     Dosage: 150 MILLIGRAM DAILY;
     Route: 048

REACTIONS (1)
  - Headache [Recovering/Resolving]

NARRATIVE: CASE EVENT DATE: 20170220
